FAERS Safety Report 5907140-6 (Version None)
Quarter: 2008Q4

REPORT INFORMATION
  Report Type: 
  Country: None (occurrence: None)
  Receive Date: 20081003
  Receipt Date: 20080922
  Transmission Date: 20090506
  Serious: Yes (Hospitalization, Other)
  Sender: FDA-Public Use
  Company Number: CA-JNJFOC-20080905987

PATIENT
  Sex: Female
  Weight: 46.8 kg

DRUGS (2)
  1. REMICADE [Suspect]
     Dosage: HAS RECEIVED A TOTAL OF 57 INFUSIONS
     Route: 042
  2. REMICADE [Suspect]
     Indication: RHEUMATOID ARTHRITIS
     Dosage: HAS RECEIVED A TOTAL OF 57 INFUSIONS
     Route: 042

REACTIONS (2)
  - HEART VALVE INCOMPETENCE [None]
  - MYOCARDIAL INFARCTION [None]
